FAERS Safety Report 8927955 (Version 1)
Quarter: 2012Q4

REPORT INFORMATION
  Report Type: Spontaneous
  Country: US (occurrence: None)
  Receive Date: 20121121
  Receipt Date: 20121121
  Transmission Date: 20130627
  Serious: No
  Sender: FDA-Public Use
  Company Number: None

PATIENT
  Age: 27 Year
  Sex: Male
  Weight: 87.54 kg

DRUGS (1)
  1. CEFDINIR [Suspect]
     Indication: STREPTOCOCCAL INFECTION
     Route: 048
     Dates: start: 20120815, end: 20120825

REACTIONS (3)
  - Paraesthesia [None]
  - Saliva altered [None]
  - Tooth disorder [None]
